FAERS Safety Report 23214787 (Version 4)
Quarter: 2023Q4

REPORT INFORMATION
  Report Type: Report from Study
  Country: US (occurrence: US)
  Receive Date: 20231121
  Receipt Date: 20231202
  Transmission Date: 20240109
  Serious: Yes (Life-Threatening, Other)
  Sender: FDA-Public Use
  Company Number: US-ABBVIE-5506239

PATIENT
  Age: 58 Year
  Sex: Female
  Weight: 67.585 kg

DRUGS (17)
  1. HUMIRA [Suspect]
     Active Substance: ADALIMUMAB
     Indication: Ankylosing spondylitis
     Dosage: STRENGTH: 40 MILLIGRAM
     Route: 058
     Dates: start: 20231115
  2. Albutirol [Concomitant]
     Indication: Asthma
  3. TIZANIDINE [Concomitant]
     Active Substance: TIZANIDINE
     Indication: Muscle spasms
  4. IMMUNE SUPPORT [Concomitant]
     Indication: Supplementation therapy
  5. PANTOPRAZOLE [Concomitant]
     Active Substance: PANTOPRAZOLE
     Indication: Dyspepsia
  6. TRAMADOL [Concomitant]
     Active Substance: TRAMADOL\TRAMADOL HYDROCHLORIDE
     Indication: Back pain
  7. HERBALS [Concomitant]
     Active Substance: HERBALS
     Indication: Nutritional supplementation
     Dosage: SUPPLEMENT
  8. LEVOTHYROXINE [Concomitant]
     Active Substance: LEVOTHYROXINE
     Indication: Thyroid disorder
  9. FERROTRATE [Concomitant]
     Indication: Oesophageal perforation
  10. CARAFATE [Concomitant]
     Active Substance: SUCRALFATE
     Indication: Oesophageal perforation
  11. FIBER [Concomitant]
     Indication: Supplementation therapy
     Dosage: GUMMY
  12. NP THYROID [Concomitant]
     Active Substance: LEVOTHYROXINE\LIOTHYRONINE
     Indication: Thyroid disorder
  13. ZOFRAN [Concomitant]
     Active Substance: ONDANSETRON HYDROCHLORIDE
     Indication: Nausea
  14. NORTRIPTYLINE [Concomitant]
     Active Substance: NORTRIPTYLINE
     Indication: Nausea
  15. SPIRIVA [Concomitant]
     Active Substance: TIOTROPIUM BROMIDE MONOHYDRATE
     Indication: Asthma
  16. PROMETHAZINE [Concomitant]
     Active Substance: PROMETHAZINE HYDROCHLORIDE
     Indication: Nausea
  17. SYNTHROID [Concomitant]
     Active Substance: LEVOTHYROXINE SODIUM
     Indication: Hypothyroidism
     Route: 065

REACTIONS (6)
  - Suicidal ideation [Recovered/Resolved]
  - Depression [Recovered/Resolved]
  - Pain [Recovered/Resolved]
  - Crying [Recovered/Resolved]
  - Adverse drug reaction [Unknown]
  - Depressed mood [Recovered/Resolved]

NARRATIVE: CASE EVENT DATE: 20231101
